FAERS Safety Report 6900777-7 (Version None)
Quarter: 2010Q3

REPORT INFORMATION
  Report Type: 
  Country: None (occurrence: None)
  Receive Date: 20100730
  Receipt Date: 20100722
  Transmission Date: 20110219
  Serious: Yes (Hospitalization)
  Sender: FDA-Public Use
  Company Number: 2010MA001117

PATIENT
  Age: 72 Year
  Sex: Female

DRUGS (5)
  1. IBUPROFEN [Suspect]
     Indication: TOOTHACHE
     Dosage: 1200 MG;QD;PO
     Route: 048
     Dates: start: 20100703, end: 20100708
  2. EZETIMIBE/SIMVASTATIN [Concomitant]
  3. GLUCOSAMINE [Concomitant]
  4. COD LIVER OIL [Concomitant]
  5. PREV MEDS [Concomitant]

REACTIONS (3)
  - DYSPHAGIA [None]
  - HYPOAESTHESIA ORAL [None]
  - SWOLLEN TONGUE [None]
